FAERS Safety Report 6805217-4 (Version None)
Quarter: 2010Q2

REPORT INFORMATION
  Report Type: 
  Country: None (occurrence: None)
  Receive Date: 20100628
  Receipt Date: 20070913
  Transmission Date: 20101027
  Serious: No
  Sender: FDA-Public Use
  Company Number: US-PFIZER INC-2007077627

PATIENT
  Sex: Female
  Weight: 145.2 kg

DRUGS (10)
  1. SUTENT [Suspect]
     Indication: RENAL CELL CARCINOMA
     Dosage: CYCLIC OD: 4 WEEKS ON/2 WEEKS OFF
     Dates: start: 20060501, end: 20070911
  2. CELEBREX [Suspect]
     Indication: ARTHRITIS
  3. GENERAL NUTRIENTS [Suspect]
     Dates: start: 20070801, end: 20070801
  4. COZAAR [Concomitant]
     Indication: HYPERTENSION
  5. VICODIN [Concomitant]
     Indication: ARTHRITIS
  6. PREVACID [Concomitant]
  7. GLIPIZIDE [Concomitant]
  8. COMBIVENT [Concomitant]
     Indication: ASTHMA
  9. DARIFENACIN HYDROBROMIDE [Concomitant]
  10. HERBAL NOS/MINERALS NOS [Concomitant]

REACTIONS (8)
  - FLUID RETENTION [None]
  - INFLUENZA [None]
  - INJURY [None]
  - MALAISE [None]
  - MYALGIA [None]
  - NASOPHARYNGITIS [None]
  - PAIN IN EXTREMITY [None]
  - PALPITATIONS [None]
